FAERS Safety Report 18822251 (Version 1)
Quarter: 2021Q1

REPORT INFORMATION
  Report Type: Spontaneous
  Country: DE (occurrence: DE)
  Receive Date: 20210202
  Receipt Date: 20210202
  Transmission Date: 20210419
  Serious: Yes (Hospitalization, Other)
  Sender: FDA-Public Use
  Company Number: DE-PFIZER INC-2021074636

PATIENT
  Age: 29 Year
  Sex: Female
  Weight: 50 kg

DRUGS (2)
  1. CYTOTEC [Suspect]
     Active Substance: MISOPROSTOL
     Indication: LABOUR INDUCTION
     Dosage: 3X 50 MIKROGRAMM, 1X 100 MIKROGRAMM EVERY 4 HOURS
     Route: 048
  2. CYTOTEC [Suspect]
     Active Substance: MISOPROSTOL
     Indication: PRETERM PREMATURE RUPTURE OF MEMBRANES

REACTIONS (9)
  - Haemorrhage [Recovered/Resolved]
  - Blood loss anaemia [Recovered/Resolved]
  - Blood iron decreased [Recovered/Resolved]
  - Uterine contractions abnormal [Recovered/Resolved]
  - Off label use [Unknown]
  - Uterine atony [Recovered/Resolved]
  - Maternal exposure during pregnancy [Unknown]
  - Asthenia [Recovered/Resolved]
  - Uterine tachysystole [Recovered/Resolved]

NARRATIVE: CASE EVENT DATE: 201908
